FAERS Safety Report 6915769-1 (Version None)
Quarter: 2010Q3

REPORT INFORMATION
  Report Type: 
  Country: None (occurrence: None)
  Receive Date: 20100810
  Receipt Date: 20091230
  Transmission Date: 20110219
  Serious: No
  Sender: FDA-Public Use
  Company Number: A0837088A

PATIENT
  Age: 60 Year
  Sex: Female

DRUGS (14)
  1. PAXIL [Suspect]
     Indication: OBSESSIVE-COMPULSIVE DISORDER
     Dosage: 40MG PER DAY
     Route: 048
  2. INSULIN [Concomitant]
  3. METFORMIN HCL [Concomitant]
  4. CLONAZEPAM [Concomitant]
  5. ASPIRIN [Concomitant]
  6. LEVOTHYROXINE [Concomitant]
  7. NITRAZEPAM [Concomitant]
  8. LOVASTATIN [Concomitant]
  9. TRAZODONE [Concomitant]
  10. AVANDIA [Concomitant]
  11. PAROXETINE HCL [Concomitant]
  12. PROPRANOLOL [Concomitant]
  13. TRAMADOL HYDROCHLORIDE [Concomitant]
  14. LANTUS [Concomitant]

REACTIONS (5)
  - COMPULSIONS [None]
  - DEPRESSION [None]
  - DIZZINESS [None]
  - OBSESSIVE THOUGHTS [None]
  - PANIC ATTACK [None]
